FAERS Safety Report 25151918 (Version 1)
Quarter: 2025Q2

REPORT INFORMATION
  Report Type: Spontaneous
  Country: AU (occurrence: AU)
  Receive Date: 20250402
  Receipt Date: 20250402
  Transmission Date: 20250717
  Serious: Yes (Other)
  Sender: ORGANON
  Company Number: None

PATIENT
  Age: 70 Year
  Sex: Male

DRUGS (14)
  1. EZETIMIBE [Interacting]
     Active Substance: EZETIMIBE
     Dosage: 10MG, ONE EACH MORNING
  2. ASPIRIN [Interacting]
     Active Substance: ASPIRIN
     Dosage: 100MG, ONCE A DAY, ONE IN EACH MORNING
  3. AMIODARONE HYDROCHLORIDE [Interacting]
     Active Substance: AMIODARONE HYDROCHLORIDE
  4. CANDESARTAN CILEXETIL [Interacting]
     Active Substance: CANDESARTAN CILEXETIL
     Dosage: 16 MG, ONCE A DAY
  5. CANDESARTAN CILEXETIL [Interacting]
     Active Substance: CANDESARTAN CILEXETIL
     Dosage: 4 MG, ONCE A DAY
  6. CARVEDILOL [Interacting]
     Active Substance: CARVEDILOL
     Dosage: 25 MG; ONE TWICE A DAY
  7. FUROSEMIDE [Interacting]
     Active Substance: FUROSEMIDE
     Dosage: 40  MILLIGRAM, ONCE A DAY
  8. FUROSEMIDE [Interacting]
     Active Substance: FUROSEMIDE
  9. GLICLAZIDE [Interacting]
     Active Substance: GLICLAZIDE
     Dosage: 60MG; TWO EACH MORNING
  10. METFORMIN HYDROCHLORIDE [Interacting]
     Active Substance: METFORMIN HYDROCHLORIDE
     Dosage: 850MG; ONE TWICE A DAY
  11. PROPYLTHIOURACIL [Interacting]
     Active Substance: PROPYLTHIOURACIL
     Dosage: 50 MILLIGRAM, Q8H (THRICE A DAY)
  12. ROSUVASTATIN CALCIUM [Interacting]
     Active Substance: ROSUVASTATIN CALCIUM
     Dosage: 20 MG, ONE EACH MORNING
  13. WARFARIN SODIUM [Interacting]
     Active Substance: WARFARIN SODIUM
     Dosage: 1 MILLIGRAM, ONE IN THE EVENING
  14. WARFARIN SODIUM [Interacting]
     Active Substance: WARFARIN SODIUM
     Dosage: 5MG; ONE IN EVENING

REACTIONS (6)
  - Renal impairment [Recovering/Resolving]
  - Dizziness [Recovered/Resolved]
  - Hypotension [Recovering/Resolving]
  - Incorrect dose administered [Unknown]
  - Labelled drug-drug interaction issue [Unknown]
  - Product physical issue [Unknown]
